FAERS Safety Report 6021509-3 (Version None)
Quarter: 2008Q4

REPORT INFORMATION
  Report Type: 
  Country: None (occurrence: None)
  Receive Date: 20081223
  Receipt Date: 20080206
  Transmission Date: 20090506
  Serious: Yes (Other)
  Sender: FDA-Public Use
  Company Number: 546039

PATIENT
  Age: 12 Year
  Sex: Male
  Weight: 54.4 kg

DRUGS (2)
  1. TAMIFLU [Suspect]
     Indication: INFLUENZA
     Dates: start: 20080204, end: 20080204
  2. NOVOLOG [Concomitant]

REACTIONS (1)
  - HALLUCINATION [None]
